FAERS Safety Report 12411293 (Version 1)
Quarter: 2016Q2

REPORT INFORMATION
  Report Type: Spontaneous
  Country: US (occurrence: US)
  Receive Date: 20160527
  Receipt Date: 20160527
  Transmission Date: 20160815
  Serious: No
  Sender: FDA-Public Use
  Company Number: US-BAYER-2016-102458

PATIENT
  Age: 58 Year
  Sex: Female

DRUGS (1)
  1. GADAVIST [Suspect]
     Active Substance: GADOBUTROL
     Indication: SPINAL LAMINECTOMY
     Dosage: 6.5 ML, ONCE
     Route: 042
     Dates: start: 20160523, end: 20160523

REACTIONS (2)
  - Dysphagia [Recovered/Resolved]
  - Pruritus [Recovered/Resolved]

NARRATIVE: CASE EVENT DATE: 20160523
